FAERS Safety Report 5836983-2 (Version None)
Quarter: 2008Q3

REPORT INFORMATION
  Report Type: 
  Country: None (occurrence: None)
  Receive Date: 20080805
  Receipt Date: 20080723
  Transmission Date: 20090109
  Serious: Yes (Hospitalization)
  Sender: FDA-Public Use
  Company Number: 233436J08USA

PATIENT
  Age: 56 Year
  Sex: Female
  Weight: 98.8842 kg

DRUGS (11)
  1. REBIF [Suspect]
     Indication: MULTIPLE SCLEROSIS
     Dosage: 44 MCG, 3 IN 1 WEEKS, SUBCUTANEOUS
     Route: 058
     Dates: start: 20070714
  2. CYMBALTA [Suspect]
     Indication: NEURALGIA
     Dosage: 60 MG, 1 IN 1 DAYS, ORAL
     Route: 048
     Dates: start: 20060101
  3. LAMICTAL [Suspect]
     Indication: BIPOLAR DISORDER
     Dosage: 25 MG, 1 IN 1 DAYS, ORAL
     Route: 048
     Dates: start: 20050101
  4. LAMICTAL [Suspect]
     Indication: DEPRESSION
     Dosage: 25 MG, 1 IN 1 DAYS, ORAL
     Route: 048
     Dates: start: 20050101
  5. LAMICTAL [Suspect]
     Indication: POST-TRAUMATIC STRESS DISORDER
     Dosage: 25 MG, 1 IN 1 DAYS, ORAL
     Route: 048
     Dates: start: 20050101
  6. SERZONE [Concomitant]
  7. PROVIGIL [Concomitant]
  8. AMBIEN [Concomitant]
  9. AMARYL [Concomitant]
  10. IBUPROFEN [Concomitant]
  11. GABAPENTIN [Concomitant]

REACTIONS (3)
  - ACUTE MYOCARDIAL INFARCTION [None]
  - HYPERLIPIDAEMIA [None]
  - HYPERTENSION [None]
